FAERS Safety Report 4767274-9 (Version None)
Quarter: 2005Q3

REPORT INFORMATION
  Report Type: 
  Country: None (occurrence: None)
  Receive Date: 20050913
  Receipt Date: 20050818
  Transmission Date: 20060218
  Serious: Yes (Other)
  Sender: FDA-Public Use
  Company Number: US-GLAXOSMITHKLINE-A0570957A

PATIENT
  Age: 35 Year
  Sex: Male

DRUGS (2)
  1. LAMICTAL [Suspect]
     Indication: BIPOLAR DISORDER
     Route: 048
     Dates: start: 20050216, end: 20050518
  2. DEPAKOTE [Concomitant]
     Dosage: 500MG THREE TIMES PER DAY

REACTIONS (2)
  - GALLBLADDER DISORDER [None]
  - HEPATIC ENZYME INCREASED [None]
